FAERS Safety Report 20739910 (Version 1)
Quarter: 2022Q2

REPORT INFORMATION
  Report Type: Spontaneous
  Country: SV (occurrence: SV)
  Receive Date: 20220422
  Receipt Date: 20220422
  Transmission Date: 20220720
  Serious: Yes (Death)
  Sender: FDA-Public Use
  Company Number: SV-NOVARTISPH-NVSC2022SV093284

PATIENT
  Sex: Female

DRUGS (1)
  1. GLIVEC [Suspect]
     Active Substance: IMATINIB MESYLATE
     Indication: Chronic myeloid leukaemia
     Dosage: 2 DOSAGE FORM (2 OF 400 MG TABLETS)
     Route: 065

REACTIONS (1)
  - Ill-defined disorder [Fatal]
